FAERS Safety Report 9383408 (Version 3)
Quarter: 2013Q3

REPORT INFORMATION
  Report Type: Spontaneous
  Country: US (occurrence: US)
  Receive Date: 20130704
  Receipt Date: 20130806
  Transmission Date: 20140515
  Serious: Yes (Other)
  Sender: FDA-Public Use
  Company Number: US-ALEXION PHARMACEUTICALS INC.-A201301504

PATIENT
  Age: 1 Year
  Sex: Female
  Weight: 10 kg

DRUGS (3)
  1. SOLIRIS 300MG [Suspect]
     Indication: HAEMOLYTIC URAEMIC SYNDROME
     Dosage: 600 MG, SINGLE
     Route: 042
     Dates: start: 20130621, end: 20130621
  2. SOLIRIS 300MG [Suspect]
     Indication: OFF LABEL USE
     Dosage: 300 MG, SINGLE
     Route: 042
     Dates: start: 20130630, end: 20130630
  3. SOLIRIS 300MG [Suspect]
     Dosage: 300 MG, SINGLE
     Route: 042
     Dates: start: 20030705, end: 20030705

REACTIONS (4)
  - Streptococcal bacteraemia [Recovered/Resolved]
  - Convulsion [Recovering/Resolving]
  - Anuria [Recovered/Resolved]
  - Escherichia test positive [Recovered/Resolved]
